FAERS Safety Report 15984948 (Version 2)
Quarter: 2019Q1

REPORT INFORMATION
  Report Type: Spontaneous
  Country: BR (occurrence: BR)
  Receive Date: 20190220
  Receipt Date: 20190318
  Transmission Date: 20190418
  Serious: Yes (Other)
  Sender: FDA-Public Use
  Company Number: BR-COLGATE PALMOLIVE COMPANY-20190200411

PATIENT
  Age: 14 Year
  Sex: Male

DRUGS (1)
  1. COLGATE TOTAL ADVANCED WHITENING [Suspect]
     Active Substance: SODIUM FLUORIDE\TRICLOSAN
     Dosage: UNK
     Dates: start: 20190131, end: 20190207

REACTIONS (9)
  - Skin exfoliation [Recovering/Resolving]
  - Loss of personal independence in daily activities [Recovering/Resolving]
  - Peripheral swelling [Recovering/Resolving]
  - Tongue injury [Recovering/Resolving]
  - Respiratory disorder [Recovering/Resolving]
  - Oral disorder [Recovering/Resolving]
  - Swollen tongue [Recovering/Resolving]
  - Swelling face [Recovering/Resolving]
  - Hypersensitivity [Recovering/Resolving]

NARRATIVE: CASE EVENT DATE: 20190206
